FAERS Safety Report 6862548-X (Version None)
Quarter: 2010Q3

REPORT INFORMATION
  Report Type: 
  Country: None (occurrence: None)
  Receive Date: 20100721
  Receipt Date: 20100609
  Transmission Date: 20110219
  Serious: Yes (Death, Other)
  Sender: FDA-Public Use
  Company Number: US-BAXTER-2010BH003530

PATIENT
  Age: 81 Year
  Sex: Male

DRUGS (24)
  1. HEPARIN SODIUM [Suspect]
     Indication: TRANSFUSION
     Route: 065
     Dates: start: 20080901
  2. HEPARIN SODIUM [Suspect]
     Indication: CHEMOTHERAPY
     Route: 065
     Dates: start: 20080901
  3. HEPARIN SODIUM [Suspect]
     Indication: PYREXIA
     Route: 065
     Dates: start: 20080901
  4. HEPARIN SODIUM [Suspect]
     Route: 065
     Dates: start: 20080901
  5. HEPARIN SODIUM [Suspect]
     Route: 065
     Dates: start: 20080901
  6. HEPARIN SODIUM [Suspect]
     Route: 065
     Dates: start: 20080901
  7. HEPARIN SODIUM [Suspect]
     Route: 065
     Dates: start: 20080901
  8. HEPARIN SODIUM [Suspect]
     Route: 065
     Dates: start: 20080901
  9. HEPARIN SODIUM [Suspect]
     Route: 065
     Dates: start: 20080901
  10. LEVOTHYROXINE SODIUM [Concomitant]
     Indication: PRODUCT USED FOR UNKNOWN INDICATION
     Route: 065
  11. OXYCODONE HCL [Concomitant]
     Indication: PRODUCT USED FOR UNKNOWN INDICATION
     Route: 065
  12. PROCHLORPERAZINE [Concomitant]
     Indication: PRODUCT USED FOR UNKNOWN INDICATION
     Route: 065
  13. CYCLOBENZAPRINE [Concomitant]
     Indication: PRODUCT USED FOR UNKNOWN INDICATION
     Route: 065
  14. OXYCODONE AND ASPIRIN [Concomitant]
     Indication: PRODUCT USED FOR UNKNOWN INDICATION
     Route: 065
  15. HALOPERIDOL [Concomitant]
     Indication: PRODUCT USED FOR UNKNOWN INDICATION
     Route: 065
  16. FLEXERIL [Concomitant]
     Indication: PRODUCT USED FOR UNKNOWN INDICATION
     Route: 065
  17. SODIUM CHLORIDE 0.9% IN PLASTIC CONTAINER [Concomitant]
     Indication: PRODUCT USED FOR UNKNOWN INDICATION
     Route: 065
  18. SULFADIAZINE SILVER [Concomitant]
     Indication: PRODUCT USED FOR UNKNOWN INDICATION
     Route: 065
  19. CEFTAZIDIME [Concomitant]
     Indication: PRODUCT USED FOR UNKNOWN INDICATION
     Route: 065
  20. SENOKOT                                 /USA/ [Concomitant]
     Indication: PRODUCT USED FOR UNKNOWN INDICATION
     Route: 048
  21. LEVOXYL [Concomitant]
     Indication: PRODUCT USED FOR UNKNOWN INDICATION
     Route: 065
  22. COLACE [Concomitant]
     Indication: PRODUCT USED FOR UNKNOWN INDICATION
     Route: 065
  23. NEUPOGEN [Concomitant]
     Indication: PRODUCT USED FOR UNKNOWN INDICATION
     Route: 065
  24. VANCOMYCIN HCL [Concomitant]
     Indication: PRODUCT USED FOR UNKNOWN INDICATION
     Route: 065

REACTIONS (18)
  - ANAEMIA [None]
  - ASTHENIA [None]
  - CARDIAC ARREST [None]
  - CARDIAC DISORDER [None]
  - CHRONIC LYMPHOCYTIC LEUKAEMIA [None]
  - FLUSHING [None]
  - HEADACHE [None]
  - HYPERHIDROSIS [None]
  - HYPERSENSITIVITY [None]
  - HYPOAESTHESIA [None]
  - HYPOTENSION [None]
  - LYMPHOMA [None]
  - OEDEMA MOUTH [None]
  - OEDEMA PERIPHERAL [None]
  - ORGAN FAILURE [None]
  - SHOCK [None]
  - THROMBOCYTOPENIA [None]
  - THROMBOSIS [None]
